FAERS Safety Report 6044867-2 (Version None)
Quarter: 2009Q1

REPORT INFORMATION
  Report Type: 
  Country: None (occurrence: None)
  Receive Date: 20090121
  Receipt Date: 20090109
  Transmission Date: 20090719
  Serious: Yes (Disabling, Other)
  Sender: FDA-Public Use
  Company Number: US-CELGENEUS-163-21880-08101496

PATIENT
  Sex: Male

DRUGS (9)
  1. REVLIMID [Suspect]
     Indication: MULTIPLE MYELOMA
     Route: 048
     Dates: start: 20070105, end: 20081008
  2. DEXAMETHASONE [Suspect]
     Indication: DRUG USE FOR UNKNOWN INDICATION
     Route: 065
  3. FISH OIL [Concomitant]
     Indication: DRUG USE FOR UNKNOWN INDICATION
     Route: 065
     Dates: start: 20080901
  4. WARFARIN SODIUM [Concomitant]
     Route: 065
     Dates: start: 20070105
  5. ASPIRIN [Concomitant]
     Route: 065
     Dates: start: 20070701, end: 20081201
  6. BACTRIM DS [Concomitant]
     Route: 065
     Dates: start: 20061201
  7. PEPCID [Concomitant]
     Indication: DYSPEPSIA
     Route: 065
     Dates: start: 20061201
  8. ATENOLOL [Concomitant]
     Indication: HYPERTENSION
     Route: 065
  9. ASPIRIN [Concomitant]
     Indication: DRUG USE FOR UNKNOWN INDICATION
     Route: 065
     Dates: start: 20081201

REACTIONS (3)
  - DISEASE PROGRESSION [None]
  - PNEUMONIA CRYPTOCOCCAL [None]
  - PULMONARY MASS [None]
